FAERS Safety Report 6201842-2 (Version None)
Quarter: 2009Q2

REPORT INFORMATION
  Report Type: 
  Country: None (occurrence: None)
  Receive Date: 20090526
  Receipt Date: 20090515
  Transmission Date: 20091009
  Serious: Yes (Hospitalization)
  Sender: FDA-Public Use
  Company Number: JP-BIOGENIDEC-2009BI001362

PATIENT
  Age: 26 Year
  Sex: Male

DRUGS (9)
  1. AVONEX [Suspect]
     Indication: RELAPSING-REMITTING MULTIPLE SCLEROSIS
     Route: 030
     Dates: start: 20081113, end: 20081120
  2. AVONEX [Suspect]
     Route: 030
     Dates: start: 20081222, end: 20081222
  3. MAGMITT [Concomitant]
  4. MYONAL [Concomitant]
  5. TERNELIN [Concomitant]
  6. DEPAKENE [Concomitant]
  7. ALFAROL [Concomitant]
  8. FAMOGAST [Concomitant]
  9. FOSAMAC [Concomitant]

REACTIONS (3)
  - BALANITIS [None]
  - EPIDIDYMITIS [None]
  - INFLUENZA LIKE ILLNESS [None]
